FAERS Safety Report 20099257 (Version 1)
Quarter: 2021Q4

REPORT INFORMATION
  Report Type: Spontaneous
  Country: GB (occurrence: GB)
  Receive Date: 20211122
  Receipt Date: 20211122
  Transmission Date: 20220303
  Serious: Yes (Other)
  Sender: FDA-Public Use
  Company Number: GB-CELLTRION INC.-2021GB015613

PATIENT

DRUGS (6)
  1. RITUXIMAB [Suspect]
     Active Substance: RITUXIMAB
     Indication: Granulomatosis with polyangiitis
     Dosage: UNK, SINGLE
  2. RITUXIMAB [Suspect]
     Active Substance: RITUXIMAB
     Dosage: UNK (5 MONTHS LATER)
  3. RITUXIMAB [Suspect]
     Active Substance: RITUXIMAB
     Dosage: 1 G (TWO 1 G DOSES)
  4. PREDNISOLONE [Suspect]
     Active Substance: PREDNISOLONE
     Indication: Granulomatosis with polyangiitis
     Dosage: UNK
  5. PREDNISOLONE [Suspect]
     Active Substance: PREDNISOLONE
     Indication: Vasculitis
     Dosage: 15 MG (INCREASED)
  6. PREDNISOLONE [Suspect]
     Active Substance: PREDNISOLONE
     Dosage: 60 MG, QD
     Route: 048

REACTIONS (5)
  - Arthralgia [Recovering/Resolving]
  - Limb discomfort [Unknown]
  - C-reactive protein increased [Unknown]
  - Sinus disorder [Unknown]
  - Fatigue [Recovering/Resolving]
